FAERS Safety Report 6357367-7 (Version None)
Quarter: 2009Q3

REPORT INFORMATION
  Report Type: 
  Country: None (occurrence: None)
  Receive Date: 20090916
  Receipt Date: 20070330
  Transmission Date: 20100115
  Serious: Yes (Hospitalization, Other)
  Sender: FDA-Public Use
  Company Number: US-ASTRAZENECA-2006UW08772

PATIENT
  Age: 52 Year
  Sex: Male
  Weight: 158.8 kg

DRUGS (10)
  1. SEROQUEL [Suspect]
     Indication: DEPRESSION
     Dosage: TOTAL DAILY DOSE - 800 MG
     Route: 048
     Dates: start: 19990101, end: 20060101
  2. SEROQUEL [Suspect]
     Indication: SCHIZOPHRENIA
     Dosage: TOTAL DAILY DOSE - 800 MG
     Route: 048
     Dates: start: 19990101, end: 20060101
  3. SEROQUEL [Suspect]
     Dosage: 200 MG QHS TO 300 MG AT BEDTIME
     Route: 048
     Dates: start: 20010313
  4. SEROQUEL [Suspect]
     Dosage: 200 MG QHS TO 300 MG AT BEDTIME
     Route: 048
     Dates: start: 20010313
  5. RISPERDAL [Concomitant]
     Dates: start: 19990101
  6. TRILAFON [Concomitant]
  7. NEURONTIN [Concomitant]
     Dosage: 600 MG ONE TIME A DAY TO 600 MG 4 TIMES PER DAY
     Route: 048
     Dates: start: 20050718
  8. PRILOSEC [Concomitant]
     Route: 048
     Dates: start: 19971117
  9. CARDURA [Concomitant]
     Route: 048
     Dates: start: 19971117
  10. ACCUPRIL [Concomitant]
     Route: 048
     Dates: start: 20050718

REACTIONS (6)
  - CELLULITIS [None]
  - GLUCOSE TOLERANCE IMPAIRED [None]
  - JOINT INJURY [None]
  - NEUROPATHY PERIPHERAL [None]
  - OBESITY [None]
  - TYPE 2 DIABETES MELLITUS [None]
